FAERS Safety Report 8928976 (Version 5)
Quarter: 2014Q3

REPORT INFORMATION
  Report Type: Spontaneous
  Country: FR (occurrence: FR)
  Receive Date: 20121128
  Receipt Date: 20140701
  Transmission Date: 20150326
  Serious: Yes (Hospitalization, Other)
  Sender: FDA-Public Use
  Company Number: FR-009507513-1211FRA009595

PATIENT
  Age: 61 Year
  Sex: Male
  Weight: 73 kg

DRUGS (13)
  1. REBETOL [Suspect]
     Active Substance: RIBAVIRIN
     Indication: HEPATITIS C
     Dosage: UNK
     Route: 048
     Dates: start: 201004, end: 20120118
  2. SPECIAFOLDINE [Concomitant]
     Active Substance: FOLIC ACID
     Dosage: 5 MG, BID
  3. NEORECORMON [Concomitant]
     Active Substance: ERYTHROPOIETIN
     Dosage: 30000 IU, UNK
     Dates: start: 201004
  4. VICTRELIS [Suspect]
     Active Substance: BOCEPREVIR
     Indication: HEPATITIS C
     Dosage: UNK
     Route: 048
     Dates: start: 201004, end: 20120118
  5. ALDACTONE [Concomitant]
     Active Substance: SPIRONOLACTONE
     Dosage: 150 MG, QD
  6. LASILIX [Concomitant]
     Active Substance: FUROSEMIDE
     Dosage: 80 MG, QD
  7. ATENOLOL. [Concomitant]
     Active Substance: ATENOLOL
     Dosage: 50 MG, QD
  8. XATRAL [Concomitant]
     Active Substance: ALFUZOSIN
     Dosage: 100 MG, QD
  9. VIRAFERONPEG [Suspect]
     Active Substance: PEGINTERFERON ALFA-2B
     Indication: HEPATITIS C
     Dosage: UNK
     Route: 058
     Dates: start: 201004, end: 20120118
  10. PYRIDOXINE [Concomitant]
     Active Substance: PYRIDOXINE
     Dosage: UNK
     Dates: start: 20120209
  11. TRANXENE T-TAB [Concomitant]
     Active Substance: CLORAZEPATE DIPOTASSIUM
     Dosage: 5 MG, QD
     Dates: start: 20120209
  12. THIAMINE [Concomitant]
     Active Substance: THIAMINE
     Dosage: 3 DF, QD
     Dates: start: 20120203
  13. CHONDROSULF [Concomitant]
     Active Substance: CHONDROITIN SULFATE (CHICKEN)
     Dosage: 400 MG, BID
     Dates: start: 20120209

REACTIONS (15)
  - Folate deficiency [Recovering/Resolving]
  - Hepatocellular carcinoma [Recovering/Resolving]
  - Weight decreased [Recovered/Resolved]
  - Malaise [Recovered/Resolved]
  - Thrombocytopenia [Recovering/Resolving]
  - Portal hypertension [Unknown]
  - Neutropenia [Recovered/Resolved]
  - General physical health deterioration [Recovered/Resolved]
  - Leukopenia [Recovered/Resolved]
  - Thrombocytopenia [Recovered/Resolved]
  - Ascites [Recovering/Resolving]
  - Leukopenia [Recovering/Resolving]
  - Hepatic cirrhosis [Recovered/Resolved]
  - Neutropenia [Recovered/Resolved]
  - Pancytopenia [Recovering/Resolving]

NARRATIVE: CASE EVENT DATE: 20110630
